FAERS Safety Report 20072599 (Version 1)
Quarter: 2021Q4

REPORT INFORMATION
  Report Type: Spontaneous
  Country: FR (occurrence: FR)
  Receive Date: 20211116
  Receipt Date: 20211116
  Transmission Date: 20220303
  Serious: Yes (Other)
  Sender: FDA-Public Use
  Company Number: FR-AFSSAPS-AVPA20210588

PATIENT
  Age: 16 Year
  Sex: Male

DRUGS (3)
  1. TRAMADOL [Suspect]
     Active Substance: TRAMADOL
     Indication: Product used for unknown indication
     Dosage: UNK (2 HOSPITAL PRESCRIPTIONS OF SPECIALTIES WITH TRAMADOL: TOPALGIC (2 GEL EVERY 6H FOR 5 DAYS) AND
     Route: 048
  2. LYRICA [Concomitant]
     Active Substance: PREGABALIN
     Indication: Product used for unknown indication
     Dosage: UNK (REPORT OF 2 ABUSES ON 06/22 AND 06/27 LEADING TO HOSPITALIZATION WITHOUT FURTHER INFORMATION)
     Route: 065
  3. RIVOTRIL [Concomitant]
     Active Substance: CLONAZEPAM
     Indication: Product used for unknown indication
     Dosage: UNK (WITHOUT FURTHER INFORMATION)
     Route: 065
     Dates: start: 20210627

REACTIONS (2)
  - Drug dependence [Not Recovered/Not Resolved]
  - Intentional product misuse [Not Recovered/Not Resolved]
